FAERS Safety Report 8404314-X (Version None)
Quarter: 2012Q2

REPORT INFORMATION
  Report Type: 
  Country: None (occurrence: None)
  Receive Date: 20120601
  Receipt Date: 20120529
  Transmission Date: 20120825
  Serious: No
  Sender: FDA-Public Use
  Company Number: US-PFIZER INC-2012107054

PATIENT
  Sex: Male

DRUGS (1)
  1. DETROL LA [Suspect]
     Dosage: 4 MG, HS

REACTIONS (4)
  - ABNORMAL BEHAVIOUR [None]
  - IMPULSE-CONTROL DISORDER [None]
  - IMPULSIVE BEHAVIOUR [None]
  - AGGRESSION [None]
